FAERS Safety Report 18418412 (Version 1)
Quarter: 2020Q4

REPORT INFORMATION
  Report Type: Report from Study
  Country: US (occurrence: US)
  Receive Date: 20201023
  Receipt Date: 20201023
  Transmission Date: 20210114
  Serious: Yes (Hospitalization, Other)
  Sender: FDA-Public Use
  Company Number: US-GILEAD-2020-0496418

PATIENT
  Age: 7 Year
  Sex: Female

DRUGS (3)
  1. AZTREONAM LYSINE [Suspect]
     Active Substance: AZTREONAM LYSINE
     Indication: CYSTIC FIBROSIS
  2. SYMDEKO [Concomitant]
     Active Substance: IVACAFTOR\TEZACAFTOR
     Dosage: 50-75/75MG ONE WHITE TAB IN THE AM AND ONE BLUE TAB IN THE EVENING.
     Dates: start: 20200901
  3. AZTREONAM LYSINE [Suspect]
     Active Substance: AZTREONAM LYSINE
     Indication: CYSTIC FIBROSIS LUNG
     Dosage: 75 MG, TID, FOR 28 DAYS ON AND 28 DAYS OFF
     Route: 055
     Dates: start: 20200709

REACTIONS (3)
  - Sinus operation [Recovering/Resolving]
  - Bronchitis [Recovering/Resolving]
  - Cystic fibrosis [Not Recovered/Not Resolved]

NARRATIVE: CASE EVENT DATE: 20200922
